FAERS Safety Report 25345474 (Version 1)
Quarter: 2025Q2

REPORT INFORMATION
  Report Type: Spontaneous
  Country: GB (occurrence: GB)
  Receive Date: 20250522
  Receipt Date: 20250522
  Transmission Date: 20250717
  Serious: Yes (Death, Other)
  Sender: ALKEM
  Company Number: None

PATIENT
  Age: 80 Year
  Sex: Female

DRUGS (12)
  1. LINEZOLID [Suspect]
     Active Substance: LINEZOLID
     Indication: Product used for unknown indication
     Dosage: 600 MILLIGRAM, BID (TABLET, CUMULATIVE DOSE: 48000 MG)
     Route: 048
     Dates: start: 20141230, end: 20150107
  2. VANCOMYCIN [Suspect]
     Active Substance: VANCOMYCIN
     Indication: Clostridium difficile infection
     Dosage: 125 MILLIGRAM, QID (CAPSULE, FOUR TIMES A DAY, CUMULATIVE DOSE OF 38000 MILLIGRAM)
     Route: 048
     Dates: start: 20141124, end: 20141128
  3. VANCOMYCIN [Suspect]
     Active Substance: VANCOMYCIN
     Indication: Product used for unknown indication
     Route: 065
  4. CIPROFLOXACIN [Suspect]
     Active Substance: CIPROFLOXACIN
     Indication: Clostridium difficile infection
     Dosage: 500 MILLIGRAM, BID (TABLET, CUMULATIVE DOSE: 11000 MG)
     Route: 048
     Dates: start: 20150219, end: 20150222
  5. OMEPRAZOLE [Suspect]
     Active Substance: OMEPRAZOLE
     Indication: Product used for unknown indication
     Dosage: 40 MILLIGRAM, BID (TWICE A DAY, POWDER FOR SOLUTION FOR INJECTION, CUMULATIVE DOSE OF 8483.33333 MIL
     Route: 042
     Dates: start: 20141025, end: 20150112
  6. OMEPRAZOLE [Suspect]
     Active Substance: OMEPRAZOLE
     Dosage: ONCE A DAY, GASTRO-RESISTANT CAPSULE, CUMULATIVE DOSE OF 1080 MILLIGRAM), GASTRO-RESISTANT CAPSULE
     Route: 045
     Dates: start: 20150112, end: 20150208
  7. MEROPENEM [Suspect]
     Active Substance: MEROPENEM
     Indication: Product used for unknown indication
     Dosage: 1 GRAM, TID (CUMULATIVE DOSE OF 228 GRAMS)
     Route: 042
     Dates: start: 20141124, end: 20141223
  8. MEROPENEM [Suspect]
     Active Substance: MEROPENEM
     Dosage: 1 GRAM, TID (CUMULATIVE DOSE OF 126 GRAM)
     Route: 043
     Dates: start: 20141228, end: 20150107
  9. METRONIDAZOLE [Suspect]
     Active Substance: METRONIDAZOLE
     Indication: Clostridium difficile infection
     Dosage: 400 MILLIGRAM, TID (THREE TIMES A DAY, CUMULATIVE DOSE: 88800 MG)
     Route: 048
     Dates: start: 20141126, end: 20141205
  10. METRONIDAZOLE [Suspect]
     Active Substance: METRONIDAZOLE
     Indication: Product used for unknown indication
     Route: 065
  11. PIPERACILLIN SODIUM\TAZOBACTAM SODIUM [Suspect]
     Active Substance: PIPERACILLIN SODIUM\TAZOBACTAM SODIUM
     Indication: Product used for unknown indication
     Dosage: 4.5 GRAM, TID (CUMULATIVE DOSE: 216 GRAM)
     Route: 042
     Dates: start: 20150123, end: 20150127
  12. PIPERACILLIN SODIUM\TAZOBACTAM SODIUM [Suspect]
     Active Substance: PIPERACILLIN SODIUM\TAZOBACTAM SODIUM
     Dosage: 4.5 GRAM, TID (CUMULATIVE DOSE: 54 GRAM)
     Route: 042
     Dates: start: 20150204, end: 20150207

REACTIONS (1)
  - Clostridium difficile infection [Fatal]
